FAERS Safety Report 4318999-0 (Version None)
Quarter: 2004Q1

REPORT INFORMATION
  Report Type: 
  Country: None (occurrence: None)
  Receive Date: 20040316
  Receipt Date: 20040304
  Transmission Date: 20041129
  Serious: Yes (Hospitalization, Disabling, Other)
  Sender: FDA-Public Use
  Company Number: 2004IC000044

PATIENT
  Age: 66 Year
  Sex: Female

DRUGS (3)
  1. FLUOROURACIL [Suspect]
     Indication: COLON CANCER
     Dosage: 600 MG; INTRAVENOUS DRIP
     Route: 041
     Dates: start: 20010618, end: 20010622
  2. LEUCOVORIN CALCIUM [Suspect]
     Indication: COLON CANCER
     Dosage: 25 MG; INTRAVENOUS
     Route: 042
     Dates: start: 20010618, end: 20010622
  3. UFT [Suspect]
     Indication: COLON CANCER
     Dosage: 400 MG; ORAL
     Route: 048
     Dates: start: 20010727, end: 20010810

REACTIONS (3)
  - APLASTIC ANAEMIA [None]
  - BONE MARROW DEPRESSION [None]
  - PANCYTOPENIA [None]
